FAERS Safety Report 14029545 (Version 2)
Quarter: 2018Q4

REPORT INFORMATION
  Report Type: Report from Study
  Country: US (occurrence: US)
  Receive Date: 20170930
  Receipt Date: 20181008
  Transmission Date: 20190204
  Serious: Yes (Other)
  Sender: FDA-Public Use
  Company Number: US-SA-2017SA145385

PATIENT
  Age: 52 Year
  Sex: Male
  Weight: 107 kg

DRUGS (4)
  1. TERIFLUNOMIDE. [Suspect]
     Active Substance: TERIFLUNOMIDE
     Dosage: 14 MG,QD
     Route: 048
     Dates: start: 20170901
  2. TERIFLUNOMIDE. [Suspect]
     Active Substance: TERIFLUNOMIDE
     Indication: MULTIPLE SCLEROSIS
     Dosage: 14 MG,QD
     Route: 048
     Dates: start: 201705
  3. ZOLOFT [Concomitant]
     Active Substance: SERTRALINE HYDROCHLORIDE
     Dosage: UNK UNK,UNK
     Route: 065
  4. DOXEPIN [Concomitant]
     Active Substance: DOXEPIN
     Dosage: UNK UNK,UNK
     Route: 065

REACTIONS (20)
  - Cervical vertebral fracture [Not Recovered/Not Resolved]
  - Depression [Unknown]
  - Dyspepsia [Not Recovered/Not Resolved]
  - Erythema [Unknown]
  - Weight increased [Not Recovered/Not Resolved]
  - Cough [Unknown]
  - Hypoaesthesia [Unknown]
  - Neck pain [Unknown]
  - Condition aggravated [Not Recovered/Not Resolved]
  - Musculoskeletal pain [Unknown]
  - Skin exfoliation [Unknown]
  - Retching [Not Recovered/Not Resolved]
  - Paraesthesia [Not Recovered/Not Resolved]
  - Alopecia [Unknown]
  - Insomnia [Not Recovered/Not Resolved]
  - Decreased interest [Unknown]
  - Diarrhoea [Unknown]
  - Lip blister [Unknown]
  - Vomiting [Not Recovered/Not Resolved]
  - Pain in extremity [Unknown]

NARRATIVE: CASE EVENT DATE: 201712
